FAERS Safety Report 24456043 (Version 2)
Quarter: 2024Q4

REPORT INFORMATION
  Report Type: Report from Study
  Country: JP (occurrence: JP)
  Receive Date: 20241017
  Receipt Date: 20241018
  Transmission Date: 20250114
  Serious: No
  Sender: ROCHE
  Company Number: JP-ROCHE-3496278

PATIENT
  Age: 86 Year
  Sex: Female

DRUGS (2)
  1. RITUXAN [Interacting]
     Active Substance: RITUXIMAB
     Indication: Anti-neutrophil cytoplasmic antibody positive vasculitis
     Route: 041
  2. ELASOMERAN [Interacting]
     Active Substance: ELASOMERAN
     Indication: COVID-19 prophylaxis
     Route: 023

REACTIONS (2)
  - Vaccine interaction [Unknown]
  - SARS-CoV-2 antibody test negative [Unknown]
